FAERS Safety Report 25746545 (Version 3)
Quarter: 2025Q4

REPORT INFORMATION
  Report Type: Spontaneous
  Country: US (occurrence: US)
  Receive Date: 20250901
  Receipt Date: 20251003
  Transmission Date: 20260117
  Serious: No
  Sender: PFIZER
  Company Number: US-PFIZER INC-202500157371

PATIENT
  Age: 12 Year
  Sex: Male

DRUGS (1)
  1. NGENLA [Suspect]
     Active Substance: SOMATROGON-GHLA
     Indication: Hypopituitarism
     Dosage: 24 MG, WEEKLY
     Route: 058
     Dates: start: 20250826

REACTIONS (1)
  - Injection site discomfort [Recovered/Resolved]

NARRATIVE: CASE EVENT DATE: 20250826
